FAERS Safety Report 5135102-8 (Version None)
Quarter: 2006Q4

REPORT INFORMATION
  Report Type: 
  Country: None (occurrence: None)
  Receive Date: 20060831
  Receipt Date: 20060607
  Transmission Date: 20070319
  Serious: No
  Sender: FDA-Public Use
  Company Number: 2006-BP-05798BP

PATIENT
  Age: 69 Year
  Sex: Female

DRUGS (5)
  1. SPIRIVA [Suspect]
     Indication: ASTHMA
     Dosage: 18 MCG (18 MCG,1 IN 1 D),IH
     Dates: start: 20040101
  2. QVAR (BECLOMETASONE DIPROPIONATE) [Concomitant]
  3. XALATAN [Concomitant]
  4. ACTONEL [Concomitant]
  5. FORADIL [Concomitant]

REACTIONS (2)
  - GLAUCOMA [None]
  - JAW DISORDER [None]
